FAERS Safety Report 6224008-9 (Version None)
Quarter: 2009Q2

REPORT INFORMATION
  Report Type: 
  Country: None (occurrence: None)
  Receive Date: 20090612
  Receipt Date: 20090304
  Transmission Date: 20091009
  Serious: No
  Sender: FDA-Public Use
  Company Number: US-ABBOTT-09P-163-0561065-00

PATIENT
  Sex: Male

DRUGS (5)
  1. HUMIRA [Suspect]
     Indication: JUVENILE ARTHRITIS
     Route: 058
     Dates: start: 20081001
  2. METHOTREXATE [Concomitant]
     Indication: JUVENILE ARTHRITIS
  3. FOLIC ACID [Concomitant]
     Indication: JUVENILE ARTHRITIS
  4. NAPROSYN [Concomitant]
     Indication: JUVENILE ARTHRITIS
  5. CALCIUM [Concomitant]
     Indication: OSTEOPOROSIS

REACTIONS (1)
  - INJECTION SITE IRRITATION [None]
